FAERS Safety Report 19966319 (Version 3)
Quarter: 2022Q1

REPORT INFORMATION
  Report Type: Report from Study
  Country: TW (occurrence: None)
  Receive Date: 20211019
  Receipt Date: 20220222
  Transmission Date: 20220423
  Serious: Yes (Other)
  Sender: FDA-Public Use
  Company Number: TW-ROCHE-2934357

PATIENT
  Age: 82 Year
  Sex: Male
  Weight: 59 kg

DRUGS (16)
  1. ATEZOLIZUMAB [Suspect]
     Active Substance: ATEZOLIZUMAB
     Indication: Hepatocellular carcinoma
     Dosage: 09/SEP/2021, HE RECEIVED THE MOST RECENT DOSE OF ATEZOLIZUMAB PRIOR TO THE EVENT.?07/OCT/2021:HE REC
     Route: 042
     Dates: start: 20191121, end: 20210930
  2. ATEZOLIZUMAB [Suspect]
     Active Substance: ATEZOLIZUMAB
     Route: 042
     Dates: start: 20211007
  3. CABOZANTINIB [Suspect]
     Active Substance: CABOZANTINIB
     Indication: Hepatocellular carcinoma
     Dosage: ON 26/DEC/2019, HE RECEIVED THE MOST RECENT DOSE OF CABOZANTINIB PRIOR TO THE EVENT AT 20 MG.?ON 23/
     Route: 048
     Dates: start: 20191121
  4. CABOZANTINIB [Suspect]
     Active Substance: CABOZANTINIB
     Route: 048
     Dates: start: 20211226
  5. CABOZANTINIB [Suspect]
     Active Substance: CABOZANTINIB
     Route: 048
     Dates: start: 20200123, end: 20200130
  6. DOXAZOSIN [Concomitant]
     Active Substance: DOXAZOSIN MESYLATE
  7. DIETARY SUPPLEMENT\HERBALS\MILK THISTLE [Concomitant]
     Active Substance: DIETARY SUPPLEMENT\HERBALS\MILK THISTLE
  8. AMLODIPINE BESYLATE [Concomitant]
     Active Substance: AMLODIPINE BESYLATE
  9. FURSULTIAMINE [Concomitant]
     Active Substance: FURSULTIAMINE
  10. ZOLPIDEM [Concomitant]
     Active Substance: ZOLPIDEM TARTRATE
  11. THIAMINE [Concomitant]
     Active Substance: THIAMINE
  12. FUROSEMIDE [Concomitant]
     Active Substance: FUROSEMIDE
  13. LEVOTHYROXINE [Concomitant]
     Active Substance: LEVOTHYROXINE
  14. FEBUXOSTAT [Concomitant]
     Active Substance: FEBUXOSTAT
  15. TAMSULOSIN [Concomitant]
     Active Substance: TAMSULOSIN
  16. MEBHYDROLIN [Concomitant]
     Active Substance: MEBHYDROLIN

REACTIONS (1)
  - Interstitial lung disease [Not Recovered/Not Resolved]

NARRATIVE: CASE EVENT DATE: 20211005
